FAERS Safety Report 18247152 (Version 2)
Quarter: 2020Q3

REPORT INFORMATION
  Report Type: Spontaneous
  Country: FR (occurrence: FR)
  Receive Date: 20200909
  Receipt Date: 20200917
  Transmission Date: 20201103
  Serious: Yes (Hospitalization)
  Sender: FDA-Public Use
  Company Number: FR-TEVA-2020-FR-1824789

PATIENT
  Age: 87 Year
  Sex: Female

DRUGS (6)
  1. GANCICLOVIR. [Suspect]
     Active Substance: GANCICLOVIR
     Dosage: DOSE WAS INCREASED
     Route: 065
  2. AMOXICILLIN. [Suspect]
     Active Substance: AMOXICILLIN
     Indication: PRODUCT USED FOR UNKNOWN INDICATION
     Dosage: HIGH DOSE
     Route: 065
  3. ACYCLOVIR. [Suspect]
     Active Substance: ACYCLOVIR
     Indication: VARICELLA ZOSTER VIRUS INFECTION
     Dosage: 30 MG/KG DAILY; 10 MG/KG THREE TIMES A DAY, EACH INFUSED FOR 3 HOURS
     Route: 065
  4. GANCICLOVIR. [Suspect]
     Active Substance: GANCICLOVIR
     Indication: VARICELLA ZOSTER VIRUS INFECTION
     Dosage: 1.25 MG/KG THREE TIMES A WEEK
     Route: 065
  5. GANCICLOVIR. [Suspect]
     Active Substance: GANCICLOVIR
     Indication: MENINGOENCEPHALITIS VIRAL
     Dosage: DOSE WAS INCREASED
     Route: 065
  6. ACYCLOVIR. [Suspect]
     Active Substance: ACYCLOVIR
     Indication: MENINGOENCEPHALITIS VIRAL

REACTIONS (8)
  - Acute kidney injury [Recovering/Resolving]
  - Off label use [Unknown]
  - Overdose [Recovering/Resolving]
  - Renal tubular necrosis [Recovering/Resolving]
  - Neurotoxicity [Recovered/Resolved]
  - Encephalopathy [Recovered/Resolved]
  - Depressed level of consciousness [Recovered/Resolved]
  - Anuria [Recovering/Resolving]
